FAERS Safety Report 9184510 (Version 1)
Quarter: 2012Q4

REPORT INFORMATION
  Report Type: 
  Country: US (occurrence: US)
  Receive Date: 20121101
  Receipt Date: 20121101
  Transmission Date: 20130627
  Serious: No
  Sender: FDA-Public Use
  Company Number: US-PFIZER INC-2012272069

PATIENT
  Sex: Male

DRUGS (3)
  1. LIPITOR [Suspect]
     Indication: INCREASED LDL
     Dosage: UNK
     Route: 048
  2. ATORVASTATIN CALCIUM [Suspect]
     Indication: INCREASED LDL
     Dosage: UNK
  3. ATORVASTATIN CALCIUM [Suspect]
     Indication: INCREASED LDL
     Dosage: UNK

REACTIONS (5)
  - Poor quality drug administered [Unknown]
  - Hypersensitivity [Unknown]
  - Sinus congestion [Unknown]
  - Pruritus [Unknown]
  - Discomfort [Unknown]
